FAERS Safety Report 8869716 (Version 3)
Quarter: 2016Q3

REPORT INFORMATION
  Report Type: Spontaneous
  Country: FR (occurrence: FR)
  Receive Date: 20121028
  Receipt Date: 20160905
  Transmission Date: 20161109
  Serious: Yes (Hospitalization)
  Sender: FDA-Public Use
  Company Number: FR-JNJFOC-20121010695

PATIENT
  Age: 50 Year
  Sex: Male

DRUGS (3)
  1. REMICADE [Suspect]
     Active Substance: INFLIXIMAB
     Indication: ANKYLOSING SPONDYLITIS
     Route: 042
     Dates: start: 2009, end: 201207
  2. REMICADE [Suspect]
     Active Substance: INFLIXIMAB
     Indication: ANKYLOSING SPONDYLITIS
     Route: 042
     Dates: start: 20130527
  3. TRAMADOL HYDROCHLORIDE. [Suspect]
     Active Substance: TRAMADOL HYDROCHLORIDE
     Indication: PRODUCT USED FOR UNKNOWN INDICATION
     Route: 065

REACTIONS (7)
  - Intervertebral disc protrusion [Recovered/Resolved]
  - Mastication disorder [Unknown]
  - VIth nerve paralysis [Recovering/Resolving]
  - Headache [Recovered/Resolved]
  - Facial paralysis [Unknown]
  - Hallucination [Unknown]
  - Meningitis [Unknown]

NARRATIVE: CASE EVENT DATE: 20120814
